FAERS Safety Report 25304171 (Version 1)
Quarter: 2025Q2

REPORT INFORMATION
  Report Type: Spontaneous
  Country: US (occurrence: US)
  Receive Date: 20250513
  Receipt Date: 20250513
  Transmission Date: 20250717
  Serious: Yes (Hospitalization, Other)
  Sender: PURACAP PHARMACEUTICAL LLC
  Company Number: US-PURACAP-US-2025EPCLIT00550

PATIENT
  Age: 8 Decade
  Sex: Female

DRUGS (16)
  1. IBUPROFEN [Suspect]
     Active Substance: IBUPROFEN
     Indication: Neuropathy peripheral
     Route: 065
  2. IBUPROFEN [Suspect]
     Active Substance: IBUPROFEN
     Indication: Spinal stenosis
  3. AMOXICILLIN [Suspect]
     Active Substance: AMOXICILLIN
     Indication: Dental operation
     Route: 065
     Dates: start: 2017
  4. AMOXICILLIN [Suspect]
     Active Substance: AMOXICILLIN
     Indication: Urinary tract infection
     Route: 065
     Dates: start: 2022
  5. AMOXICILLIN [Suspect]
     Active Substance: AMOXICILLIN
     Route: 065
     Dates: start: 2023
  6. KETOROLAC [Concomitant]
     Active Substance: KETOROLAC TROMETHAMINE
     Indication: Migraine
     Route: 065
     Dates: start: 2023
  7. PROCHLORPERAZINE [Concomitant]
     Active Substance: PROCHLORPERAZINE
     Indication: Migraine
     Route: 065
     Dates: start: 2023
  8. PROCHLORPERAZINE [Concomitant]
     Active Substance: PROCHLORPERAZINE
     Indication: Nausea
     Route: 065
     Dates: start: 2023
  9. DIPHENHYDRAMINE [Concomitant]
     Active Substance: DIPHENHYDRAMINE
     Indication: Migraine
     Route: 065
     Dates: start: 2023
  10. BACLOFEN [Concomitant]
     Active Substance: BACLOFEN
     Route: 065
     Dates: start: 2023
  11. BACLOFEN [Concomitant]
     Active Substance: BACLOFEN
     Route: 065
     Dates: start: 2023
  12. CLINDAMYCIN [Concomitant]
     Active Substance: CLINDAMYCIN
     Indication: Peritonsillar abscess
     Route: 065
     Dates: start: 2023
  13. CLINDAMYCIN [Concomitant]
     Active Substance: CLINDAMYCIN
     Indication: Meningitis aseptic
     Route: 042
     Dates: start: 2023
  14. CLINDAMYCIN [Concomitant]
     Active Substance: CLINDAMYCIN
     Route: 048
  15. ACETAMINOPHEN [Concomitant]
     Active Substance: ACETAMINOPHEN
     Indication: Peritonsillar abscess
     Route: 065
     Dates: start: 2023
  16. ACETAMINOPHEN [Concomitant]
     Active Substance: ACETAMINOPHEN
     Route: 065
     Dates: start: 2023

REACTIONS (2)
  - Meningitis aseptic [Recovered/Resolved]
  - Product use in unapproved indication [Unknown]
